FAERS Safety Report 12175479 (Version 1)
Quarter: 2016Q1

REPORT INFORMATION
  Report Type: Spontaneous
  Country: US (occurrence: US)
  Receive Date: 20160314
  Receipt Date: 20160314
  Transmission Date: 20160526
  Serious: Yes (Other)
  Sender: FDA-Public Use
  Company Number: US-ENDO PHARMACEUTICALS INC.-2015-001904

PATIENT
  Age: 75 Year
  Sex: Male
  Weight: 74.91 kg

DRUGS (3)
  1. XIAFLEX [Suspect]
     Active Substance: COLLAGENASE CLOSTRIDIUM HISTOLYTICUM
     Indication: DUPUYTREN^S CONTRACTURE
     Dosage: PINKY OF THE LEFT HAND
     Route: 026
     Dates: start: 20150629, end: 20150629
  2. XIAFLEX [Suspect]
     Active Substance: COLLAGENASE CLOSTRIDIUM HISTOLYTICUM
     Dosage: RING FINGER OF THE LEFT HAND
     Route: 026
     Dates: start: 20140428, end: 20140428
  3. XIAFLEX [Suspect]
     Active Substance: COLLAGENASE CLOSTRIDIUM HISTOLYTICUM
     Dosage: PINKY OF THE LEFT HAND
     Route: 026
     Dates: start: 20140602, end: 20140602

REACTIONS (2)
  - Blood blister [Recovering/Resolving]
  - Blister [Recovered/Resolved]

NARRATIVE: CASE EVENT DATE: 20150629
